FAERS Safety Report 15713046 (Version 1)
Quarter: 2018Q4

REPORT INFORMATION
  Report Type: Spontaneous
  Country: US (occurrence: US)
  Receive Date: 20181211
  Receipt Date: 20181211
  Transmission Date: 20190205
  Serious: Yes (Life-Threatening, Hospitalization, Disabling, Other)
  Sender: FDA-Public Use
  Company Number: None

PATIENT
  Age: 61 Year
  Sex: Male
  Weight: 81 kg

DRUGS (1)
  1. ANORO ELLIPTA [Suspect]
     Active Substance: UMECLIDINIUM BROMIDE\VILANTEROL TRIFENATATE
     Indication: PRODUCT USED FOR UNKNOWN INDICATION
     Dosage: ?          OTHER STRENGTH:MCG / INHALER;QUANTITY:1 INHALATION(S);?
     Route: 055
     Dates: start: 20180501, end: 20180528

REACTIONS (8)
  - Throat irritation [None]
  - Aphonia [None]
  - Cough [None]
  - Blindness [None]
  - Vision blurred [None]
  - Oropharyngeal pain [None]
  - Dysphagia [None]
  - Migraine [None]

NARRATIVE: CASE EVENT DATE: 20180528
